FAERS Safety Report 7344280-1 (Version None)
Quarter: 2011Q1

REPORT INFORMATION
  Report Type: 
  Country: None (occurrence: None)
  Receive Date: 20110310
  Receipt Date: 20101011
  Transmission Date: 20110831
  Serious: No
  Sender: FDA-Public Use
  Company Number: A0885857A

PATIENT
  Age: 46 Year
  Sex: Female

DRUGS (2)
  1. NICORETTE [Suspect]
     Dates: start: 20101001, end: 20101011
  2. NICORETTE [Suspect]
     Dates: start: 20101001, end: 20101011

REACTIONS (1)
  - HEART RATE INCREASED [None]
